FAERS Safety Report 17791772 (Version 1)
Quarter: 2020Q2

REPORT INFORMATION
  Report Type: Spontaneous
  Country: JP (occurrence: JP)
  Receive Date: 20200515
  Receipt Date: 20200515
  Transmission Date: 20200714
  Serious: Yes (Hospitalization)
  Sender: FDA-Public Use
  Company Number: JP-ASTRAZENECA-2019SF54166

PATIENT
  Age: 65 Year
  Sex: Male

DRUGS (2)
  1. SPIOLTO [Concomitant]
     Active Substance: OLODATEROL HYDROCHLORIDE\TIOTROPIUM BROMIDE MONOHYDRATE
  2. IMFINZI [Suspect]
     Active Substance: DURVALUMAB
     Indication: NON-SMALL CELL LUNG CANCER STAGE IIIB
     Route: 042
     Dates: start: 20181017, end: 20190425

REACTIONS (2)
  - Pleural effusion [Recovered/Resolved]
  - Immunoglobulin G4 related disease [Recovered/Resolved]

NARRATIVE: CASE EVENT DATE: 20190509
